FAERS Safety Report 8638713 (Version 2)
Quarter: 2013Q1

REPORT INFORMATION
  Report Type: Spontaneous
  Country: US (occurrence: US)
  Receive Date: 20120627
  Receipt Date: 20130225
  Transmission Date: 20140127
  Serious: Yes (Hospitalization)
  Sender: FDA-Public Use
  Company Number: US-BAYER-2012-062557

PATIENT
  Age: 29 Year
  Sex: Female
  Weight: 106.58 kg

DRUGS (8)
  1. YAZ [Suspect]
     Indication: ACNE
     Dosage: UNK
  2. OCELLA [Suspect]
     Indication: ACNE
     Dosage: UNK
     Dates: start: 201009, end: 201010
  3. ZARAH [Suspect]
     Indication: ACNE
     Dosage: UNK
     Dates: start: 201101, end: 201108
  4. HYDROCHLOROTHIAZIDE [Concomitant]
     Dosage: 25 MG, UNK
     Route: 048
  5. ALBUTEROL [Concomitant]
     Dosage: UNK, PRN Q4H
     Route: 045
  6. CALCIUM VIT D [Concomitant]
     Route: 048
  7. MELATONIN [Concomitant]
     Route: 048
  8. IBUPROFEN [Concomitant]
     Dosage: UNK, PRN
     Route: 048

REACTIONS (7)
  - Deep vein thrombosis [None]
  - Pulmonary embolism [None]
  - Thrombosis [None]
  - Dyspnoea [None]
  - Injury [None]
  - Pain [None]
  - Pain [None]
